FAERS Safety Report 4712665-5 (Version None)
Quarter: 2005Q3

REPORT INFORMATION
  Report Type: 
  Country: None (occurrence: None)
  Receive Date: 20050706
  Receipt Date: 20041104
  Transmission Date: 20060218
  Serious: Yes (Other)
  Sender: FDA-Public Use
  Company Number: US-2004-032074

PATIENT
  Age: 74 Year
  Sex: Male
  Weight: 66 kg

DRUGS (11)
  1. CAMPATH [Suspect]
     Indication: CHRONIC LYMPHOCYTIC LEUKAEMIA
     Dosage: SEE IMAGE
     Route: 058
     Dates: start: 20040712, end: 20040712
  2. CAMPATH [Suspect]
     Indication: CHRONIC LYMPHOCYTIC LEUKAEMIA
     Dosage: SEE IMAGE
     Route: 058
     Dates: start: 20040715, end: 20040715
  3. CAMPATH [Suspect]
     Indication: CHRONIC LYMPHOCYTIC LEUKAEMIA
     Dosage: SEE IMAGE
     Route: 058
     Dates: start: 20040715, end: 20040910
  4. . [Concomitant]
  5. . [Concomitant]
  6. RITUXAN [Concomitant]
  7. DIFLUCAN [Concomitant]
  8. VALGANCICLOVIR [Concomitant]
  9. BENADRYL ^WARNER LAMBERT^ /USA/DIPHENHYDRAMINE HYDROCHLORIDE) [Concomitant]
  10. TYLENOL [Concomitant]
  11. LEVAQUIN [Concomitant]

REACTIONS (1)
  - APLASTIC ANAEMIA [None]
